FAERS Safety Report 9850252 (Version 1)
Quarter: 2014Q1

REPORT INFORMATION
  Report Type: Spontaneous
  Country: FR (occurrence: FR)
  Receive Date: 20140128
  Receipt Date: 20140128
  Transmission Date: 20141002
  Serious: Yes (Hospitalization)
  Sender: FDA-Public Use
  Company Number: PHHY2014FR008657

PATIENT
  Age: 90 Year
  Sex: Male

DRUGS (7)
  1. BISOPROLOL SANDOZ [Suspect]
     Dosage: 5 MG, QD
     Route: 048
  2. BISOPROLOL SANDOZ [Suspect]
     Dosage: 5 UNK, UNK
     Route: 048
     Dates: start: 20131028
  3. PREVISCAN [Suspect]
     Dosage: 1 DF, QD
     Route: 048
     Dates: end: 20131002
  4. PREVISCAN [Suspect]
     Dosage: 1 DF EVERY 2 OR 3 DAYS
     Dates: start: 20131015
  5. PREVISCAN [Suspect]
     Dosage: 1 DF EVERY 2 OR 3 DAYS
     Dates: start: 20131028
  6. CEFTRIAXONE [Concomitant]
     Indication: PYREXIA
     Dosage: UNK UKN, UNK
     Dates: start: 20131004, end: 20131005
  7. CEFTRIAXONE [Concomitant]
     Dosage: 1 DF, Q48H
     Route: 065
     Dates: start: 20131009, end: 20131026

REACTIONS (1)
  - Neutropenia [Recovered/Resolved]
